FAERS Safety Report 4883899-4 (Version None)
Quarter: 2006Q1

REPORT INFORMATION
  Report Type: 
  Country: None (occurrence: None)
  Receive Date: 20060113
  Receipt Date: 20060106
  Transmission Date: 20060701
  Serious: Yes (Hospitalization)
  Sender: FDA-Public Use
  Company Number: CHWYE282406JAN06

PATIENT
  Age: 65 Year
  Sex: Female

DRUGS (16)
  1. TAZOBAC (PIPERACILLING/TAZOBACTAM, INJECTION) LOT NO.: UNK [Suspect]
     Indication: INFECTION
     Dosage: 4.5 G 3X PER 1 DAY
     Route: 042
     Dates: start: 20050809, end: 20050811
  2. METFORMIN HCL [Concomitant]
  3. SIMVASTATIN [Concomitant]
  4. INSULIN [Concomitant]
  5. ALLOPURINOL [Concomitant]
  6. CYTOSAR-U [Suspect]
     Indication: ACUTE MYELOID LEUKAEMIA
     Dosage: 350 MG 1X PER 1 DAY
     Route: 042
     Dates: start: 20050810, end: 20050816
  7. FUNGIZONE [Suspect]
     Indication: ANTIFUNGAL PROPHYLAXIS
     Dosage: 70 MG 1X PER 1 DAY
     Route: 042
     Dates: start: 20050829, end: 20050906
  8. MAXIPIME [Suspect]
     Indication: INFECTION
     Dosage: 1 G 3X PER 1 DAY
     Route: 042
  9. MERONEM (MERONEM) [Suspect]
     Indication: INFECTION
     Dosage: 1 G 3X PER 1 DAY
     Route: 042
     Dates: start: 20050811, end: 20050824
  10. CITALOPRAM HYDROBROMIDE [Suspect]
     Dosage: 20 MG 1X PER 1 DAY
     Route: 048
     Dates: start: 20050811, end: 20050906
  11. AMIKIN [Concomitant]
  12. VALTREX [Concomitant]
  13. FLAGYL [Concomitant]
  14. KALIUM HAUSMANN (POTASSIUM CHLORIDE) [Concomitant]
  15. URSO FALK [Concomitant]
  16. CERUBIDINE [Concomitant]

REACTIONS (3)
  - CHOLESTASIS [None]
  - CONDITION AGGRAVATED [None]
  - SEPSIS [None]
